FAERS Safety Report 11211475 (Version 1)
Quarter: 2015Q2

REPORT INFORMATION
  Report Type: Report from Study
  Country: BR (occurrence: BR)
  Receive Date: 20150623
  Receipt Date: 20150623
  Transmission Date: 20150821
  Serious: Yes (Other)
  Sender: FDA-Public Use
  Company Number: PHHY2015BR031566

PATIENT
  Sex: Female
  Weight: 72 kg

DRUGS (7)
  1. ESCITALOPRAM [Suspect]
     Active Substance: ESCITALOPRAM OXALATE
     Indication: DEPRESSION
     Dosage: 1 DF, QD (AFTER BREAKFAST)
     Route: 065
     Dates: start: 201411
  2. EXELON PATCH [Suspect]
     Active Substance: RIVASTIGMINE
     Indication: MEMORY IMPAIRMENT
     Dosage: 1 DF, QD (AFTER DINNER)
     Route: 062
     Dates: start: 2008, end: 2009
  3. MELOXICAM. [Suspect]
     Active Substance: MELOXICAM
     Indication: ANXIETY
     Dosage: 15 MG, QD (AFTER LUNCH)
     Route: 065
  4. SERTRALINE HCL [Suspect]
     Active Substance: SERTRALINE HYDROCHLORIDE
     Indication: INSOMNIA
  5. PREBICTAL [Concomitant]
     Active Substance: PREGABALIN
     Indication: PRODUCT USED FOR UNKNOWN INDICATION
     Dosage: 1 DF, QD
     Route: 048
  6. SERTRALINE HCL [Suspect]
     Active Substance: SERTRALINE HYDROCHLORIDE
     Indication: MEMORY IMPAIRMENT
     Dosage: 1 DF, QHS (AT NIGHT)
     Route: 065
  7. SERTRALINE HCL [Suspect]
     Active Substance: SERTRALINE HYDROCHLORIDE
     Indication: DEPRESSION

REACTIONS (8)
  - Depression [Recovering/Resolving]
  - Headache [Not Recovered/Not Resolved]
  - Hip fracture [Recovered/Resolved]
  - Memory impairment [Recovering/Resolving]
  - Emotional disorder [Unknown]
  - Off label use [Unknown]
  - Rib fracture [Recovered/Resolved]
  - Upper limb fracture [Recovered/Resolved]

NARRATIVE: CASE EVENT DATE: 2008
